FAERS Safety Report 25043647 (Version 4)
Quarter: 2025Q4

REPORT INFORMATION
  Report Type: Spontaneous
  Country: JP (occurrence: JP)
  Receive Date: 20250306
  Receipt Date: 20251229
  Transmission Date: 20260117
  Serious: Yes (Other)
  Sender: GENMAB
  Company Number: JP-GENMAB-2025-00522

PATIENT
  Age: 76 Year
  Sex: Female

DRUGS (7)
  1. EPKINLY [Suspect]
     Active Substance: EPCORITAMAB-BYSP
     Indication: Diffuse large B-cell lymphoma
     Dosage: UNK
     Route: 065
     Dates: start: 202409, end: 202409
  2. EPKINLY [Suspect]
     Active Substance: EPCORITAMAB-BYSP
     Dosage: 48 MILLIGRAM
     Route: 065
     Dates: start: 20240920
  3. PREDNISOLONE [Concomitant]
     Active Substance: PREDNISOLONE
     Indication: Prophylaxis
     Dosage: 100 MILLIGRAM, ON DAY 1, DAY 2, DAY 3, AND DAY 4 OF ADMINISTRATION OF EPKINLY, FROM THE FIRST TO THE
     Dates: start: 202409, end: 2024
  4. DIPHENHYDRAMINE [Concomitant]
     Active Substance: DIPHENHYDRAMINE
     Indication: Prophylaxis
     Dosage: 30 MILLIGRAM, ON DAY 1 OF ADMINISTRATION OF EPKINLY, FROM THE FIRST TO THE FOURTH ADMINISTRATION IN
     Dates: start: 202409, end: 2024
  5. CALONAL [Concomitant]
     Active Substance: ACETAMINOPHEN
     Indication: Prophylaxis
     Dosage: 400 MILLIGRAM, ON DAY 1 OF ADMINISTRATION OF EPKINLY, FROM THE FIRST TO THE FOURTH ADMINISTRATION IN
     Dates: start: 202409, end: 2024
  6. DEXTROSE\SODIUM CHLORIDE\SODIUM LACTATE [Concomitant]
     Active Substance: DEXTROSE\SODIUM CHLORIDE\SODIUM LACTATE
     Indication: Prophylaxis
     Dosage: 1000 MILLILITER, AT THE FIRST ADMINISTRATION IN CYCLE 1
     Dates: start: 20240906, end: 20240906
  7. DEXTROSE\SODIUM CHLORIDE\SODIUM LACTATE [Concomitant]
     Active Substance: DEXTROSE\SODIUM CHLORIDE\SODIUM LACTATE
     Dosage: 1000 MILLILITER, AT THE THIRD ADMINISTRATION IN CYCLE 1
     Dates: start: 20240920, end: 20240920

REACTIONS (2)
  - Diffuse large B-cell lymphoma [Recovered/Resolved]
  - Cytokine release syndrome [Recovered/Resolved]

NARRATIVE: CASE EVENT DATE: 20240101
